FAERS Safety Report 12411476 (Version 4)
Quarter: 2016Q4

REPORT INFORMATION
  Report Type: Report from Study
  Country: MX (occurrence: MX)
  Receive Date: 20160527
  Receipt Date: 20161026
  Transmission Date: 20170207
  Serious: Yes (Other)
  Sender: FDA-Public Use
  Company Number: PHHY2016MX071732

PATIENT
  Age: 68 Year
  Sex: Female

DRUGS (5)
  1. DIOVAN [Suspect]
     Active Substance: VALSARTAN
     Indication: HYPERTENSION
     Dosage: 1 DF, Q12H
     Route: 048
     Dates: start: 200910, end: 2012
  2. DIOVAN [Suspect]
     Active Substance: VALSARTAN
     Dosage: 15 DAYS BEFORE SHE STOPPED TAKING DIOVAN DUE TO OTHER PHYSICIAN RECOMMENDATION
     Route: 065
  3. DIOVAN [Suspect]
     Active Substance: VALSARTAN
     Dosage: 1 DF, Q12H
     Route: 048
     Dates: start: 201511
  4. DIOVAN [Suspect]
     Active Substance: VALSARTAN
     Route: 065
     Dates: end: 2013
  5. BLODIVIT [Concomitant]
     Indication: PRODUCT USED FOR UNKNOWN INDICATION
     Route: 065

REACTIONS (7)
  - Hypertension [Unknown]
  - Angina unstable [Unknown]
  - Stress [Recovered/Resolved]
  - Inappropriate schedule of drug administration [Not Recovered/Not Resolved]
  - Amnesia [Recovered/Resolved]
  - Dizziness [Unknown]
  - Dengue fever [Recovered/Resolved]

NARRATIVE: CASE EVENT DATE: 200910
